FAERS Safety Report 8475102-3 (Version None)
Quarter: 2012Q2

REPORT INFORMATION
  Report Type: 
  Country: None (occurrence: None)
  Receive Date: 20120622
  Receipt Date: 20120611
  Transmission Date: 20120825
  Serious: Yes (Other)
  Sender: FDA-Public Use
  Company Number: 2012P1040891

PATIENT
  Age: 34 Year
  Sex: Female

DRUGS (2)
  1. VINORELBINE [Suspect]
     Indication: CHEMOTHERAPY
     Dosage: 40 MG;X1;IV
     Route: 042
  2. CISPLATIN [Suspect]
     Indication: CHEMOTHERAPY
     Dosage: 90 MG;X1;IV
     Route: 042

REACTIONS (7)
  - HYPERTENSION [None]
  - HYPOMAGNESAEMIA [None]
  - OXYGEN SATURATION DECREASED [None]
  - HYPERPHOSPHATAEMIA [None]
  - POSTERIOR REVERSIBLE ENCEPHALOPATHY SYNDROME [None]
  - GRAND MAL CONVULSION [None]
  - HYPERCALCAEMIA [None]
